FAERS Safety Report 5415102-0 (Version None)
Quarter: 2007Q3

REPORT INFORMATION
  Report Type: 
  Country: None (occurrence: None)
  Receive Date: 20070815
  Receipt Date: 20070606
  Transmission Date: 20080115
  Serious: No
  Sender: FDA-Public Use
  Company Number: A0654420A

PATIENT
  Age: 80 Year
  Sex: Female

DRUGS (5)
  1. COREG CR [Suspect]
     Dosage: 40MG PER DAY
     Route: 048
     Dates: start: 20070303, end: 20070603
  2. ENALAPRIL MALEATE [Concomitant]
  3. MALATE SALT [Concomitant]
  4. VYTORIN [Concomitant]
  5. ISOSORBIDE DINITRATE [Concomitant]

REACTIONS (2)
  - ASTHENIA [None]
  - FEELING ABNORMAL [None]
